FAERS Safety Report 9333851 (Version 1)
Quarter: 2013Q2

REPORT INFORMATION
  Report Type: Spontaneous
  Country: CA (occurrence: None)
  Receive Date: 20130604
  Receipt Date: 20130604
  Transmission Date: 20140414
  Serious: Yes (Other)
  Sender: FDA-Public Use
  Company Number: 2013P1006398

PATIENT
  Age: 29 Year
  Sex: Female

DRUGS (2)
  1. ISOTRETINOIN [Suspect]
     Indication: ACNE
  2. ORAL CONTRACEPTIVE [Suspect]
     Indication: CONTRACEPTION

REACTIONS (3)
  - Pregnancy [None]
  - Abortion induced [None]
  - Exposure during pregnancy [None]
